FAERS Safety Report 17936015 (Version 1)
Quarter: 2020Q2

REPORT INFORMATION
  Report Type: Spontaneous
  Country: JP (occurrence: JP)
  Receive Date: 20200624
  Receipt Date: 20200624
  Transmission Date: 20200714
  Serious: Yes (Other)
  Sender: FDA-Public Use
  Company Number: JP-PFIZER INC-2020239707

PATIENT
  Age: 42 Year
  Sex: Female
  Weight: 46.3 kg

DRUGS (10)
  1. PREDNIZOLONE [Suspect]
     Active Substance: PREDNISOLONE
     Dosage: 45 MG
     Route: 048
  2. METHYLPREDNISOLONE SODIUM SUCCINATE. [Suspect]
     Active Substance: METHYLPREDNISOLONE SODIUM SUCCINATE
     Dosage: 1000 MG, 3DAYS
     Route: 042
  3. METHYLPREDNISOLONE SODIUM SUCCINATE. [Suspect]
     Active Substance: METHYLPREDNISOLONE SODIUM SUCCINATE
     Dosage: 1000 MG, 3DAYS
     Route: 042
  4. PREDNIZOLONE [Suspect]
     Active Substance: PREDNISOLONE
     Dosage: 25 MG
     Route: 048
  5. THIAMAZOLE [Concomitant]
     Active Substance: METHIMAZOLE
     Dosage: 5 MG
     Route: 048
  6. THIAMAZOLE [Concomitant]
     Active Substance: METHIMAZOLE
     Dosage: 5 MG, ALTERNATE DAY
  7. LEVETIRACETAM. [Concomitant]
     Active Substance: LEVETIRACETAM
     Dosage: 1000 MG
     Route: 048
  8. LEVOTHYROXINE. [Concomitant]
     Active Substance: LEVOTHYROXINE
     Dosage: 25 UG
     Route: 048
  9. INSULIN LISPRO [Concomitant]
     Active Substance: INSULIN LISPRO
     Dosage: 18 DF, DAILY
  10. INSULIN DEGLUDEC [Concomitant]
     Active Substance: INSULIN DEGLUDEC
     Dosage: 13 DF, DAILY (IN THE MORNING)

REACTIONS (1)
  - Irritability [Unknown]
